FAERS Safety Report 17235096 (Version 1)
Quarter: 2020Q1

REPORT INFORMATION
  Report Type: Spontaneous
  Country: US (occurrence: US)
  Receive Date: 20200106
  Receipt Date: 20200106
  Transmission Date: 20200409
  Serious: Yes (Hospitalization, Other)
  Sender: FDA-Public Use
  Company Number: US-AUROBINDO-AUR-APL-2019-107699

PATIENT
  Age: 4 Year
  Sex: Female

DRUGS (2)
  1. SEVELAMER CARBONATE. [Suspect]
     Active Substance: SEVELAMER CARBONATE
     Indication: BLOOD PHOSPHORUS
     Dosage: UNK
     Route: 048
  2. SODIUM POLYSTYRENE SULFONATE. [Suspect]
     Active Substance: SODIUM POLYSTYRENE SULFONATE
     Indication: BLOOD POTASSIUM
     Dosage: UNK
     Route: 065

REACTIONS (5)
  - Ischaemia [Unknown]
  - Excessive granulation tissue [Unknown]
  - Polyp [Unknown]
  - Gastrointestinal motility disorder [Unknown]
  - Ulcer [Recovered/Resolved]
